FAERS Safety Report 7526062-0 (Version None)
Quarter: 2011Q2

REPORT INFORMATION
  Report Type: 
  Country: None (occurrence: None)
  Receive Date: 20110526
  Receipt Date: 20110510
  Transmission Date: 20111010
  Serious: Yes (Hospitalization, Other)
  Sender: FDA-Public Use
  Company Number: 2008AP001888

PATIENT
  Age: 80 Year
  Sex: Female

DRUGS (7)
  1. PRAVASTATIN SODIUM [Suspect]
     Indication: HYPERCHOLESTEROLAEMIA
     Dosage: 20 MG
     Route: 048
  2. ATENOLOL [Concomitant]
  3. LEVOTHYROXINE SODIUM [Concomitant]
  4. DICLOFENAC SODIUM [Concomitant]
  5. AMITRIPTYLINE HCL [Suspect]
     Indication: DEPRESSION
     Dosage: 50 MG
  6. MISOPROSTOL [Concomitant]
  7. ACETYLSALICYLIC ACID (ACETYLSALICYLIC ACID) [Concomitant]

REACTIONS (15)
  - DRUG INTERACTION [None]
  - DECREASED APPETITE [None]
  - COLITIS [None]
  - BLOOD PRESSURE DIASTOLIC DECREASED [None]
  - PLATELET COUNT INCREASED [None]
  - FIBROSIS [None]
  - DEHYDRATION [None]
  - SCAR [None]
  - BLOOD ALBUMIN DECREASED [None]
  - PSEUDOPOLYPOSIS [None]
  - WEIGHT DECREASED [None]
  - ANAEMIA [None]
  - BLOOD UREA INCREASED [None]
  - LARGE INTESTINAL ULCER [None]
  - TOXICITY TO VARIOUS AGENTS [None]
